FAERS Safety Report 18621866 (Version 2)
Quarter: 2020Q4

REPORT INFORMATION
  Report Type: Spontaneous
  Country: US (occurrence: US)
  Receive Date: 20201216
  Receipt Date: 20201216
  Transmission Date: 20210114
  Serious: Yes (Other)
  Sender: FDA-Public Use
  Company Number: US-DRREDDYS-USA/USA/20/0130151

PATIENT
  Age: 50 Year
  Sex: Female

DRUGS (6)
  1. BACLOFEN. [Suspect]
     Active Substance: BACLOFEN
     Indication: STIFF PERSON SYNDROME
     Route: 048
  2. METHYLPREDNISOLONE. [Concomitant]
     Active Substance: METHYLPREDNISOLONE
     Indication: STIFF PERSON SYNDROME
  3. DIAZEPAM. [Suspect]
     Active Substance: DIAZEPAM
     Indication: STIFF PERSON SYNDROME
     Route: 048
  4. PREDNISONE. [Concomitant]
     Active Substance: PREDNISONE
     Indication: STIFF PERSON SYNDROME
     Route: 048
  5. TIZANIDINE HYDROCHLORIDE. [Suspect]
     Active Substance: TIZANIDINE HYDROCHLORIDE
     Indication: STIFF PERSON SYNDROME
     Route: 048
  6. IMMUNOGLOBULIN [Concomitant]
     Indication: STIFF PERSON SYNDROME

REACTIONS (1)
  - Drug ineffective [Unknown]
